FAERS Safety Report 10146788 (Version 3)
Quarter: 2014Q2

REPORT INFORMATION
  Report Type: Spontaneous
  Country: JP (occurrence: JP)
  Receive Date: 20140501
  Receipt Date: 20140611
  Transmission Date: 20141212
  Serious: Yes (Death, Life-Threatening, Hospitalization)
  Sender: FDA-Public Use
  Company Number: JP-BAYER-2014-060672

PATIENT
  Age: 79 Year
  Sex: Male
  Weight: 49 kg

DRUGS (3)
  1. NEXAVAR [Suspect]
     Indication: RENAL CELL CARCINOMA
     Dosage: 800 MG DAILY DOSE
     Route: 048
     Dates: start: 20130628
  2. NEXAVAR [Suspect]
     Indication: RENAL CELL CARCINOMA
     Dosage: 400 MG DAILY DOSE
     Route: 048
     Dates: start: 20130709, end: 20130713
  3. NEXAVAR [Suspect]
     Indication: RENAL CELL CARCINOMA
     Dosage: 200 MG DAILY DOSE
     Route: 048
     Dates: start: 20130723, end: 20131004

REACTIONS (4)
  - Gastric ulcer haemorrhage [Recovering/Resolving]
  - Renal cell carcinoma [Fatal]
  - Haematemesis [Recovering/Resolving]
  - Melaena [Recovering/Resolving]
